FAERS Safety Report 19912871 (Version 1)
Quarter: 2021Q4

REPORT INFORMATION
  Report Type: Spontaneous
  Country: PT (occurrence: PT)
  Receive Date: 20211004
  Receipt Date: 20211004
  Transmission Date: 20220303
  Serious: Yes (Hospitalization, Other)
  Sender: FDA-Public Use
  Company Number: PT-BAYER-2021-145482

PATIENT
  Age: 79 Year
  Sex: Male

DRUGS (1)
  1. SORAFENIB [Suspect]
     Active Substance: SORAFENIB
     Indication: Product used for unknown indication
     Dosage: UNK

REACTIONS (6)
  - Haematemesis [Unknown]
  - Melaena [Unknown]
  - Thrombocytopenia [Unknown]
  - Anaemia [Unknown]
  - Epistaxis [Unknown]
  - Blood disorder [Unknown]
